FAERS Safety Report 18498241 (Version 1)
Quarter: 2020Q4

REPORT INFORMATION
  Report Type: Spontaneous
  Country: IN (occurrence: IN)
  Receive Date: 20201112
  Receipt Date: 20201112
  Transmission Date: 20210114
  Serious: Yes (Hospitalization, Other)
  Sender: FDA-Public Use
  Company Number: IN-ABBVIE-18K-078-3123575-00

PATIENT
  Age: 66 Year
  Sex: Male

DRUGS (2)
  1. IMBRUVICA [Suspect]
     Active Substance: IBRUTINIB
     Indication: CHRONIC LYMPHOCYTIC LEUKAEMIA
     Dosage: DOSAGE FORM: UNSPECIFIED
     Route: 048
  2. IMBRUVICA [Suspect]
     Active Substance: IBRUTINIB
     Dosage: DOSAGE FORM: UNSPECIFIED
     Route: 048
     Dates: start: 201801

REACTIONS (6)
  - Pneumonitis [Unknown]
  - Bronchopulmonary aspergillosis [Recovering/Resolving]
  - Incorrect dose administered [Unknown]
  - Candida pneumonia [Recovering/Resolving]
  - Respiratory failure [Recovering/Resolving]
  - Off label use [Unknown]
